FAERS Safety Report 13505358 (Version 2)
Quarter: 2017Q3

REPORT INFORMATION
  Report Type: Spontaneous
  Country: JP (occurrence: JP)
  Receive Date: 20170502
  Receipt Date: 20170712
  Transmission Date: 20171127
  Serious: Yes (Other)
  Sender: FDA-Public Use
  Company Number: JP-BAYER-2017-058610

PATIENT
  Age: 76 Year
  Sex: Male
  Weight: 54.4 kg

DRUGS (2)
  1. GADOVIST [Suspect]
     Active Substance: GADOBUTROL
     Indication: NUCLEAR MAGNETIC RESONANCE IMAGING ABDOMINAL
     Dosage: UNK
     Route: 042
     Dates: start: 20170302, end: 20170302
  2. GADOVIST [Suspect]
     Active Substance: GADOBUTROL
     Indication: PROSTATE CANCER

REACTIONS (4)
  - Infusion site extravasation [None]
  - Pyrexia [Recovered/Resolved]
  - Eosinophil count increased [Recovered/Resolved]
  - Hepatic function abnormal [Recovered/Resolved]

NARRATIVE: CASE EVENT DATE: 20170302
